FAERS Safety Report 7050380-6 (Version None)
Quarter: 2010Q4

REPORT INFORMATION
  Report Type: 
  Country: None (occurrence: None)
  Receive Date: 20101013
  Receipt Date: 20101007
  Transmission Date: 20110411
  Serious: Yes (Life-Threatening)
  Sender: FDA-Public Use
  Company Number: 2010US003329

PATIENT
  Age: 35 Year
  Sex: Female
  Weight: 70 kg

DRUGS (8)
  1. AMBISOME [Suspect]
     Indication: INFECTION
     Dosage: 240 MG, /D
     Dates: start: 20100628, end: 20100704
  2. MEROPENEM [Concomitant]
  3. TARGOCID [Concomitant]
  4. SOLU-MEDROL [Concomitant]
  5. HIDANTHAL (PHENYTOIN) [Concomitant]
  6. CEFEPIME [Concomitant]
  7. RITUXAN [Concomitant]
  8. CORTICOSTEROIDS [Concomitant]

REACTIONS (5)
  - GENERALISED OEDEMA [None]
  - HYPERAEMIA [None]
  - RESPIRATORY DISORDER [None]
  - SEPTIC SHOCK [None]
  - STEVENS-JOHNSON SYNDROME [None]
